FAERS Safety Report 24277084 (Version 1)
Quarter: 2024Q3

REPORT INFORMATION
  Report Type: Spontaneous
  Country: US (occurrence: None)
  Receive Date: 20240829
  Receipt Date: 20240829
  Transmission Date: 20241017
  Serious: Yes (Other)
  Sender: Public
  Company Number: None

PATIENT
  Age: 67 Year
  Sex: Female
  Weight: 90.72 kg

DRUGS (15)
  1. ANASTROZOLE [Suspect]
     Active Substance: ANASTROZOLE
     Indication: Blood oestrogen increased
     Dosage: FREQUENCY : DAILY;?
     Route: 048
     Dates: start: 202107, end: 202405
  2. ANASTROZOLE [Suspect]
     Active Substance: ANASTROZOLE
     Indication: Breast cancer
  3. ANASTROZOLE [Suspect]
     Active Substance: ANASTROZOLE
     Indication: Prophylaxis
  4. METFORMIN HYDROCHLORIDE [Concomitant]
     Active Substance: METFORMIN HYDROCHLORIDE
  5. JARDIANCE [Concomitant]
     Active Substance: EMPAGLIFLOZIN
  6. LOSARTAN [Concomitant]
     Active Substance: LOSARTAN\LOSARTAN POTASSIUM
  7. PRAVASTATIN [Concomitant]
     Active Substance: PRAVASTATIN
  8. neuriva original [Concomitant]
  9. VITAMIN B12 [Concomitant]
     Active Substance: CYANOCOBALAMIN
  10. omega-3/vitamin d [Concomitant]
  11. calcium-magnesium -zinc [Concomitant]
  12. VITAMIN D [Concomitant]
     Active Substance: VITAMIN D NOS
  13. SUPER COLLAGEN [Concomitant]
  14. VITAMIN C [Concomitant]
     Active Substance: ASCORBIC ACID
  15. BIOTIN [Concomitant]
     Active Substance: BIOTIN

REACTIONS (44)
  - Paraesthesia [None]
  - Hypoaesthesia [None]
  - Hypoaesthesia [None]
  - Vein disorder [None]
  - Burning sensation [None]
  - Sleep disorder [None]
  - Urinary tract infection [None]
  - Abdominal pain lower [None]
  - Pelvic pain [None]
  - Feeling abnormal [None]
  - Suicidal ideation [None]
  - Blood urine [None]
  - Dysuria [None]
  - Lymphadenopathy [None]
  - Paraesthesia [None]
  - Bone pain [None]
  - Dyspnoea [None]
  - Peripheral swelling [None]
  - Mood altered [None]
  - Depression [None]
  - Visual impairment [None]
  - Breast pain [None]
  - Hot flush [None]
  - Dizziness [None]
  - Fatigue [None]
  - Asthenia [None]
  - Headache [None]
  - Constipation [None]
  - Diarrhoea [None]
  - Abdominal pain upper [None]
  - Abdominal discomfort [None]
  - Decreased appetite [None]
  - Vomiting [None]
  - Dyspepsia [None]
  - Back pain [None]
  - Myalgia [None]
  - Arthralgia [None]
  - Joint swelling [None]
  - Insomnia [None]
  - Cough [None]
  - Oropharyngeal pain [None]
  - Weight increased [None]
  - Anxiety [None]
  - Hyperhidrosis [None]

NARRATIVE: CASE EVENT DATE: 20230301
